FAERS Safety Report 6615889-5 (Version None)
Quarter: 2010Q1

REPORT INFORMATION
  Report Type: 
  Country: None (occurrence: None)
  Receive Date: 20100305
  Receipt Date: 20100224
  Transmission Date: 20100710
  Serious: Yes (Hospitalization, Other)
  Sender: FDA-Public Use
  Company Number: US-JNJFOC-20100204281

PATIENT
  Sex: Female

DRUGS (7)
  1. NUCYNTA [Suspect]
     Indication: PAIN
     Route: 048
  2. CYMBALTA [Suspect]
     Indication: DRUG USE FOR UNKNOWN INDICATION
     Route: 048
  3. CYMBALTA [Suspect]
     Route: 048
  4. AMITRIPTYLINE HCL [Suspect]
     Indication: DRUG USE FOR UNKNOWN INDICATION
     Route: 048
  5. AMITRIPTYLINE HCL [Suspect]
     Dosage: 50-100 MG
     Route: 048
  6. VICODIN [Suspect]
     Indication: PAIN
     Route: 048
  7. PERCOCET [Suspect]
     Indication: DRUG USE FOR UNKNOWN INDICATION
     Route: 065

REACTIONS (3)
  - DYSKINESIA [None]
  - HYPOAESTHESIA ORAL [None]
  - SEROTONIN SYNDROME [None]
